FAERS Safety Report 25827512 (Version 1)
Quarter: 2025Q3

REPORT INFORMATION
  Report Type: Report from Study
  Country: EU (occurrence: EU)
  Receive Date: 20250920
  Receipt Date: 20250920
  Transmission Date: 20251021
  Serious: Yes (Hospitalization)
  Sender: ALEXION PHARMACEUTICALS
  Company Number: EU-PFIZER INC-PV202500110466

PATIENT
  Age: 88 Year
  Sex: Female

DRUGS (18)
  1. FASLODEX [Suspect]
     Active Substance: FULVESTRANT
     Indication: Breast neoplasm
  2. PALBOCICLIB [Suspect]
     Active Substance: PALBOCICLIB
     Indication: Breast neoplasm
     Dates: start: 20211118, end: 20221012
  3. PALBOCICLIB [Suspect]
     Active Substance: PALBOCICLIB
  4. XGEVA [Suspect]
     Active Substance: DENOSUMAB
     Indication: Prophylaxis
     Dosage: 120 MG, MONTHLY, LAST DOSE WAS GIVEN ON 04AUG2025
     Dates: start: 20220114, end: 20250911
  5. METOPROLOL [Concomitant]
     Active Substance: METOPROLOL
     Indication: Essential hypertension
  6. CRESTOR [Concomitant]
     Active Substance: ROSUVASTATIN CALCIUM
     Indication: Hypercholesterolaemia
  7. DIGITOXIN [Concomitant]
     Active Substance: DIGITOXIN
     Indication: Arrhythmia
  8. OMEPRAZOLE [Concomitant]
     Active Substance: OMEPRAZOLE
     Indication: Prophylaxis
  9. EDOXABAN TOSYLATE [Concomitant]
     Active Substance: EDOXABAN TOSYLATE
     Indication: Prophylaxis
  10. VERAPAMIL [Concomitant]
     Active Substance: VERAPAMIL HYDROCHLORIDE
     Indication: Essential hypertension
  11. CHOLECALCIFEROL [Concomitant]
     Active Substance: CHOLECALCIFEROL
     Indication: Prophylaxis
  12. NIFEDIPINE [Concomitant]
     Active Substance: NIFEDIPINE
     Indication: Rheumatoid arthritis
  13. BECLOMETHASONE DIPROPIONATE [Concomitant]
     Active Substance: BECLOMETHASONE DIPROPIONATE
     Indication: Prophylaxis
  14. XELJANZ [Concomitant]
     Active Substance: TOFACITINIB CITRATE
     Indication: Rheumatoid arthritis
  15. PREDNISONE [Concomitant]
     Active Substance: PREDNISONE
     Indication: Rheumatoid arthritis
  16. ZOLPIDEM [Concomitant]
     Active Substance: ZOLPIDEM TARTRATE
     Indication: Prophylaxis
  17. Novalgin [Concomitant]
     Indication: Prophylaxis
  18. ESTRIOL [Concomitant]
     Active Substance: ESTRIOL
     Indication: Prophylaxis

REACTIONS (1)
  - Tooth abscess [Not Recovered/Not Resolved]

NARRATIVE: CASE EVENT DATE: 20250819
